FAERS Safety Report 15697931 (Version 2)
Quarter: 2018Q4

REPORT INFORMATION
  Report Type: Spontaneous
  Country: None (occurrence: JP)
  Receive Date: 20181207
  Receipt Date: 20181227
  Transmission Date: 20190205
  Serious: Yes (Hospitalization, Other)
  Sender: FDA-Public Use
  Company Number: JP-VIFOR (INTERNATIONAL) INC.-VIT-2018-12132

PATIENT
  Age: 46 Year
  Sex: Female

DRUGS (2)
  1. VELPHORO [Suspect]
     Active Substance: FERRIC OXYHYDROXIDE
     Indication: HYPERPHOSPHATAEMIA
     Route: 048
  2. VELPHORO [Suspect]
     Active Substance: FERRIC OXYHYDROXIDE
     Route: 045

REACTIONS (6)
  - Fall [Unknown]
  - Hemiparesis [Unknown]
  - Haemoglobin decreased [Unknown]
  - Foaming at mouth [Unknown]
  - Product use issue [Unknown]
  - Putamen haemorrhage [Recovering/Resolving]
